FAERS Safety Report 7460555-X (Version None)
Quarter: 2011Q2

REPORT INFORMATION
  Report Type: 
  Country: None (occurrence: None)
  Receive Date: 20110505
  Receipt Date: 20110502
  Transmission Date: 20111010
  Serious: Yes (Other)
  Sender: FDA-Public Use
  Company Number: US-PFIZER INC-2011023025

PATIENT
  Sex: Female

DRUGS (4)
  1. ALBUTEROL [Concomitant]
     Indication: ASTHMA
     Dosage: UNK
  2. IBUPROFEN [Concomitant]
     Indication: PAIN
     Dosage: UNK
     Dates: start: 20070101, end: 20100101
  3. VICODIN [Concomitant]
     Indication: PAIN
     Dosage: UNK
     Dates: start: 20070101, end: 20100101
  4. CHANTIX [Suspect]
     Indication: SMOKING CESSATION THERAPY
     Dosage: STARTER PACK
     Dates: start: 20090305, end: 20090405

REACTIONS (10)
  - SUICIDAL IDEATION [None]
  - BIPOLAR DISORDER [None]
  - AMNESIA [None]
  - IRRITABILITY [None]
  - ANGER [None]
  - ANXIETY [None]
  - AGGRESSION [None]
  - AGITATION [None]
  - LOSS OF CONSCIOUSNESS [None]
  - DEPRESSION [None]
